FAERS Safety Report 15855004 (Version 2)
Quarter: 2019Q1

REPORT INFORMATION
  Report Type: Spontaneous
  Country: IT (occurrence: IT)
  Receive Date: 20190122
  Receipt Date: 20190130
  Transmission Date: 20190417
  Serious: Yes (Other)
  Sender: FDA-Public Use
  Company Number: IT-PFM-2019-00129

PATIENT
  Age: 80 Year
  Sex: Male

DRUGS (3)
  1. VINORELBINE [Suspect]
     Active Substance: VINORELBINE\VINORELBINE TARTRATE
     Indication: NON-SMALL CELL LUNG CANCER STAGE IV
     Dosage: 22.5 MG/M2, ON DAYS 1 AND 8 EVERY 21
     Route: 042
  2. VINORELBINE [Suspect]
     Active Substance: VINORELBINE\VINORELBINE TARTRATE
     Dosage: 25 MG/M2, ON DAYS 1 AND 8 EVERY 21
     Route: 042
  3. CISPLATIN. [Suspect]
     Active Substance: CISPLATIN
     Indication: NON-SMALL CELL LUNG CANCER STAGE IV
     Dosage: 50 MG/M2, CYCLICAL(1/21).
     Route: 042

REACTIONS (7)
  - Radiation sickness syndrome [Unknown]
  - Thrombocytopenia [Unknown]
  - Febrile neutropenia [Recovered/Resolved]
  - Anaemia [Recovered/Resolved]
  - Radiation pneumonitis [Recovered/Resolved]
  - Interstitial lung disease [Unknown]
  - Constipation [Unknown]
